FAERS Safety Report 10677857 (Version 1)
Quarter: 2014Q4

REPORT INFORMATION
  Report Type: Spontaneous
  Country: GB (occurrence: GB)
  Receive Date: 20141229
  Receipt Date: 20141229
  Transmission Date: 20150529
  Serious: Yes (Other)
  Sender: FDA-Public Use
  Company Number: GB-ACCORD-027716

PATIENT
  Age: 63 Year
  Sex: Male

DRUGS (26)
  1. EPLERENONE. [Concomitant]
     Active Substance: EPLERENONE
  2. GASTROCOTE [Concomitant]
  3. DICLOFENAC [Concomitant]
     Active Substance: DICLOFENAC
  4. BISOPROLOL [Concomitant]
     Active Substance: BISOPROLOL
  5. CALCIUM CARBONATE. [Concomitant]
     Active Substance: CALCIUM CARBONATE
  6. TAMSULOSIN/TAMSULOSIN HYDROCHLORIDE [Concomitant]
  7. GAVISCON [Concomitant]
     Active Substance: ALUMINUM HYDROXIDE\MAGNESIUM CARBONATE
  8. SENNA [Concomitant]
     Active Substance: SENNA LEAF\SENNOSIDES\SENNOSIDES A AND B
  9. METFORMIN [Concomitant]
     Active Substance: METFORMIN HYDROCHLORIDE
  10. COCODAMOL [Concomitant]
     Active Substance: ACETAMINOPHEN\CODEINE PHOSPHATE
  11. FOLIC ACID. [Concomitant]
     Active Substance: FOLIC ACID
  12. GLYCERYL TRINITRATE [Concomitant]
     Active Substance: NITROGLYCERIN
  13. METHOTREXATE [Suspect]
     Active Substance: METHOTREXATE
     Indication: RHEUMATOID ARTHRITIS
     Route: 058
     Dates: start: 2011, end: 20140904
  14. HYDROXYCHLOROQUINE [Concomitant]
     Active Substance: HYDROXYCHLOROQUINE
  15. TRIMETHOPRIM/TRIMETHOPRIM LACTATE/TRIMETHOPRIM SULFATE [Interacting]
     Active Substance: TRIMETHOPRIM
     Indication: URINARY TRACT INFECTION
     Route: 048
     Dates: start: 20130320, end: 20140904
  16. CITALOPRAM [Concomitant]
     Active Substance: CITALOPRAM HYDROBROMIDE
  17. LEVOTHYROXINE [Concomitant]
     Active Substance: LEVOTHYROXINE
  18. CLARITHROMYCIN/CLARITHROMYCIN LACTOBIONATE [Concomitant]
  19. OMEPRAZOLE. [Concomitant]
     Active Substance: OMEPRAZOLE
  20. SULFASALAZINE. [Concomitant]
     Active Substance: SULFASALAZINE
  21. IRON [Concomitant]
     Active Substance: IRON
  22. CYCLIZINE [Concomitant]
     Active Substance: CYCLIZINE
  23. NITROFURANTOIN/NITROFURANTOIN SODIUM [Concomitant]
  24. ACETYLSALICYLIC ACID [Concomitant]
     Active Substance: ASPIRIN
  25. METOCLOPRAMIDE. [Concomitant]
     Active Substance: METOCLOPRAMIDE
  26. PRAVASTATIN [Concomitant]
     Active Substance: PRAVASTATIN\PRAVASTATIN SODIUM

REACTIONS (4)
  - Off label use [Unknown]
  - Labelled drug-drug interaction medication error [Unknown]
  - Bone marrow failure [Recovered/Resolved]
  - Drug interaction [Unknown]

NARRATIVE: CASE EVENT DATE: 20130320
